FAERS Safety Report 4870600-3 (Version None)
Quarter: 2005Q4

REPORT INFORMATION
  Report Type: 
  Country: None (occurrence: None)
  Receive Date: 20051228
  Receipt Date: 20051213
  Transmission Date: 20060501
  Serious: Yes (Other)
  Sender: FDA-Public Use
  Company Number: 2005-BP-21492RO

PATIENT
  Age: 45 Year
  Sex: Male

DRUGS (1)
  1. DEXAMETHASONE [Suspect]
     Indication: CHORIORETINOPATHY
     Dosage: SEE IMAGE

REACTIONS (4)
  - DETACHMENT OF RETINAL PIGMENT EPITHELIUM [None]
  - OCULAR VASCULAR DISORDER [None]
  - RETINAL DETACHMENT [None]
  - VISUAL ACUITY REDUCED [None]
